FAERS Safety Report 11689912 (Version 1)
Quarter: 2015Q4

REPORT INFORMATION
  Report Type: Spontaneous
  Country: US (occurrence: US)
  Receive Date: 20151102
  Receipt Date: 20151102
  Transmission Date: 20160304
  Serious: No
  Sender: FDA-Public Use
  Company Number: US-JNJFOC-20151012894

PATIENT
  Sex: Male

DRUGS (3)
  1. PREZCOBIX [Suspect]
     Active Substance: COBICISTAT\DARUNAVIR ETHANOLATE
     Indication: HIV INFECTION
     Route: 048
     Dates: start: 201508
  2. TRUVADA [Concomitant]
     Active Substance: EMTRICITABINE\TENOFOVIR DISOPROXIL FUMARATE
     Indication: HIV INFECTION
  3. DRUG NOT SPECIFIED [Suspect]
     Active Substance: UNSPECIFIED INGREDIENT
     Indication: SYPHILIS

REACTIONS (4)
  - Rash [Unknown]
  - Nausea [Unknown]
  - Transaminases increased [Recovered/Resolved]
  - Vomiting [Unknown]
